FAERS Safety Report 8947836 (Version 4)
Quarter: 2013Q3

REPORT INFORMATION
  Report Type: Spontaneous
  Country: US (occurrence: US)
  Receive Date: 20121204
  Receipt Date: 20130705
  Transmission Date: 20140515
  Serious: Yes (Other)
  Sender: FDA-Public Use
  Company Number: US-PFIZER INC-2012300575

PATIENT
  Age: 17 Year
  Sex: Female
  Weight: 87.53 kg

DRUGS (8)
  1. DEPO-PROVERA [Suspect]
     Indication: CONTRACEPTION
     Dosage: 150 MG, EVERY 3 MONTHS (EVERY 12 WEEKS)
     Route: 030
     Dates: start: 20110215, end: 20121003
  2. DEPO-PROVERA [Suspect]
     Indication: CONTRACEPTION
  3. LEXAPRO [Concomitant]
     Indication: DEPRESSION
     Dosage: UNK
  4. MAXALT [Concomitant]
     Indication: MIGRAINE
     Dosage: UNK
  5. ADVAIR DISKUS [Concomitant]
     Indication: ASTHMA
     Dosage: UNK
  6. LOHIST [Concomitant]
     Indication: ASTHMA
     Dosage: UNK
  7. PRO-AIR [Concomitant]
  8. ADVAIR [Concomitant]

REACTIONS (2)
  - Drug ineffective [Unknown]
  - Unintended pregnancy [Unknown]
